FAERS Safety Report 9096802 (Version 3)
Quarter: 2014Q1

REPORT INFORMATION
  Report Type: Spontaneous
  Country: US (occurrence: None)
  Receive Date: 20130115
  Receipt Date: 20130606
  Transmission Date: 20141002
  Serious: Yes (Hospitalization)
  Sender: FDA-Public Use
  Company Number: 2013PROUSA02441

PATIENT
  Age: 85 Year
  Sex: Male
  Weight: 68 kg

DRUGS (9)
  1. PROVENGE (SIPULEUCEL-T) SUSPENSION [Suspect]
     Indication: PROSTATE CANCER METASTATIC
     Route: 042
     Dates: start: 20121210, end: 20121210
  2. TAMSULOSIN (TAMSULOSIN) [Concomitant]
  3. AMLODIPINE (AMLODIPINE) [Concomitant]
  4. ATORVASTATIN (ATORVASTATIN CALCIUM) [Concomitant]
  5. TUMS (CALCIUM CARBONATE, MAGNESIUM CARONATE, MAGNESIUM TRISILICATE) [Concomitant]
  6. COLACE [Concomitant]
  7. CENTRUM SILVER [Concomitant]
  8. ASPIRIN (ACETYLSALICYLIC ACID) [Concomitant]
  9. GARLIC (GARLIC) [Concomitant]

REACTIONS (2)
  - Cerebrovascular accident [None]
  - Embolic stroke [None]
